FAERS Safety Report 8913979 (Version 1)
Quarter: 2012Q4

REPORT INFORMATION
  Report Type: 
  Country: ZA (occurrence: ZA)
  Receive Date: 20121119
  Receipt Date: 20121119
  Transmission Date: 20130627
  Serious: Yes (Hospitalization)
  Sender: FDA-Public Use
  Company Number: ZA-ELI_LILLY_AND_COMPANY-ZA201211002856

PATIENT
  Sex: Female
  Weight: 50 kg

DRUGS (2)
  1. HUMALOG 25% LISPRO, 75% NPL [Suspect]
     Indication: DIABETES MELLITUS
     Dosage: 20 u, each morning
     Route: 058
     Dates: start: 20120914
  2. HUMALOG 25% LISPRO, 75% NPL [Suspect]
     Dosage: 10 u, each evening
     Route: 058
     Dates: start: 20120914

REACTIONS (2)
  - Blood glucose increased [Recovering/Resolving]
  - Diarrhoea [Recovering/Resolving]
